FAERS Safety Report 23773774 (Version 3)
Quarter: 2024Q2

REPORT INFORMATION
  Report Type: Spontaneous
  Country: US (occurrence: US)
  Receive Date: 20240423
  Receipt Date: 20240509
  Transmission Date: 20240716
  Serious: Yes (Other)
  Sender: FDA-Public Use
  Company Number: US-ORGANON-O2404USA002639

PATIENT
  Age: 32 Year
  Sex: Female
  Weight: 188.6 kg

DRUGS (1)
  1. NEXPLANON [Suspect]
     Active Substance: ETONOGESTREL
     Indication: Contraception
     Dosage: 1 IMPLANT 68 MG
     Route: 059
     Dates: start: 20240212, end: 20240304

REACTIONS (2)
  - Device expulsion [Recovered/Resolved]
  - Implant site infection [Unknown]

NARRATIVE: CASE EVENT DATE: 20240201
